FAERS Safety Report 7951241-8 (Version None)
Quarter: 2011Q4

REPORT INFORMATION
  Report Type: 
  Country: None (occurrence: None)
  Receive Date: 20111128
  Receipt Date: 20111115
  Transmission Date: 20120403
  Serious: Yes (Other)
  Sender: FDA-Public Use
  Company Number: 2010JP006115

PATIENT
  Age: 46 Year
  Sex: Female
  Weight: 67.4 kg

DRUGS (16)
  1. PROGRAF [Suspect]
     Indication: IMMUNOSUPPRESSANT DRUG THERAPY
     Dosage: 3 MG, BID, ORAL, 1 MG, BID, ORAL
     Route: 048
     Dates: start: 20080118, end: 20080122
  2. PROGRAF [Suspect]
     Indication: IMMUNOSUPPRESSANT DRUG THERAPY
     Dosage: 3 MG, BID, ORAL, 1 MG, BID, ORAL
     Route: 048
     Dates: start: 20070328, end: 20080117
  3. RITUXAN [Concomitant]
  4. SOLU-MEDROL [Concomitant]
  5. PGE 1 (ALPROSTADIL) INJECTION [Concomitant]
  6. PREDNISOLONE [Concomitant]
  7. PERSANTIN [Concomitant]
  8. TAMIFLU [Concomitant]
  9. PGE 1 (ALPROSTADIL) INJECTION [Concomitant]
  10. SOLU-MEDROL [Concomitant]
  11. SOLU-MEDROL [Concomitant]
  12. FUTHAN (NAFAMOSTAT MESILATE) [Concomitant]
  13. PREDNISOLONE [Concomitant]
  14. CELLCEPT [Concomitant]
  15. FAMOTIDINE [Concomitant]
  16. WARFARIN SODIUM [Concomitant]

REACTIONS (6)
  - SHOCK [None]
  - DEPRESSED LEVEL OF CONSCIOUSNESS [None]
  - CIRCULATORY COLLAPSE [None]
  - SINUS TACHYCARDIA [None]
  - INFLUENZA [None]
  - PNEUMONIA BACTERIAL [None]
